FAERS Safety Report 5954827-5 (Version None)
Quarter: 2008Q4

REPORT INFORMATION
  Report Type: 
  Country: None (occurrence: None)
  Receive Date: 20081031
  Receipt Date: 20080623
  Transmission Date: 20090506
  Serious: No
  Sender: FDA-Public Use
  Company Number: 2008PV035862

PATIENT
  Age: 60 Year
  Sex: Female

DRUGS (3)
  1. SYMLIN [Suspect]
     Indication: TYPE 2 DIABETES MELLITUS
     Dosage: 180 MCG; HS; SC; 180 MCG; BID; SC
     Route: 058
     Dates: start: 20080501, end: 20080501
  2. SYMLIN [Suspect]
     Indication: TYPE 2 DIABETES MELLITUS
     Dosage: 180 MCG; HS; SC; 180 MCG; BID; SC
     Route: 058
     Dates: start: 20080501
  3. NOVOLOG [Concomitant]

REACTIONS (3)
  - ARTHRALGIA [None]
  - MYALGIA [None]
  - NAUSEA [None]
